FAERS Safety Report 9559438 (Version 2)
Quarter: 2013Q4

REPORT INFORMATION
  Report Type: Spontaneous
  Country: FI (occurrence: FI)
  Receive Date: 20130927
  Receipt Date: 20131126
  Transmission Date: 20140711
  Serious: Yes (Other)
  Sender: FDA-Public Use
  Company Number: FI-ELI_LILLY_AND_COMPANY-FI201309005615

PATIENT
  Sex: Female

DRUGS (3)
  1. CYMBALTA [Suspect]
     Indication: ANXIETY
     Dosage: 30 MG, UNKNOWN
     Route: 065
     Dates: start: 20130515, end: 20130521
  2. CYMBALTA [Suspect]
     Indication: SCIATICA
     Dosage: 60 MG, UNKNOWN
     Route: 065
     Dates: start: 20130522
  3. ZOMIG [Concomitant]
     Indication: MIGRAINE
     Dosage: 2.5 MG, PRN
     Route: 065

REACTIONS (3)
  - Suicidal ideation [Recovered/Resolved]
  - Bruxism [Recovered/Resolved]
  - Libido decreased [Recovered/Resolved]
